FAERS Safety Report 18734955 (Version 1)
Quarter: 2021Q1

REPORT INFORMATION
  Report Type: Spontaneous
  Country: US (occurrence: US)
  Receive Date: 20210113
  Receipt Date: 20210113
  Transmission Date: 20210419
  Serious: Yes (Other)
  Sender: FDA-Public Use
  Company Number: US-MYLANLABS-2021M1001476

PATIENT
  Age: 7 Year
  Sex: Female
  Weight: 30 kg

DRUGS (3)
  1. FLUCONAZOLE. [Concomitant]
     Active Substance: FLUCONAZOLE
     Indication: FUNGAEMIA
  2. HEPARIN [Suspect]
     Active Substance: HEPARIN SODIUM
     Indication: ANTICOAGULANT THERAPY
     Dosage: AFTER PLACEMENT OF THE RV MECHANICAL ASSIST DEVICE AND OXYGENATOR
     Route: 065
  3. FLUCONAZOLE. [Concomitant]
     Active Substance: FLUCONAZOLE
     Indication: PROPHYLAXIS
     Route: 065

REACTIONS (4)
  - Thrombocytopenia [Recovered/Resolved]
  - Coagulopathy [Recovered/Resolved]
  - Conjunctival haemorrhage [Unknown]
  - Haemorrhage subcutaneous [Unknown]
